FAERS Safety Report 10884103 (Version 3)
Quarter: 2015Q2

REPORT INFORMATION
  Report Type: Report from Study
  Country: US (occurrence: US)
  Receive Date: 20150304
  Receipt Date: 20150601
  Transmission Date: 20150821
  Serious: Yes (Hospitalization, Other)
  Sender: FDA-Public Use
  Company Number: US-BIOGENIDEC-2015BI025374

PATIENT
  Age: 61 Year
  Sex: Female

DRUGS (5)
  1. AVONEX [Suspect]
     Active Substance: INTERFERON BETA-1A
     Indication: RELAPSING-REMITTING MULTIPLE SCLEROSIS
     Route: 030
     Dates: start: 200308, end: 20140318
  2. AVONEX [Suspect]
     Active Substance: INTERFERON BETA-1A
     Indication: RELAPSING-REMITTING MULTIPLE SCLEROSIS
     Route: 030
     Dates: start: 1997
  3. AVONEX [Suspect]
     Active Substance: INTERFERON BETA-1A
     Indication: RELAPSING-REMITTING MULTIPLE SCLEROSIS
     Route: 030
     Dates: start: 20140318, end: 20150228
  4. AVONEX [Suspect]
     Active Substance: INTERFERON BETA-1A
     Indication: RELAPSING-REMITTING MULTIPLE SCLEROSIS
     Route: 030
     Dates: start: 19991001, end: 200308
  5. AVONEX [Suspect]
     Active Substance: INTERFERON BETA-1A
     Indication: RELAPSING-REMITTING MULTIPLE SCLEROSIS
     Route: 030
     Dates: start: 201505

REACTIONS (33)
  - Nervousness [Unknown]
  - Eating disorder [Not Recovered/Not Resolved]
  - Cholelithiasis [Not Recovered/Not Resolved]
  - Carcinoembryonic antigen [Not Recovered/Not Resolved]
  - Nausea [Unknown]
  - Pyrexia [Not Recovered/Not Resolved]
  - Pancreatitis [Not Recovered/Not Resolved]
  - Stress [Not Recovered/Not Resolved]
  - Dysphemia [Recovered/Resolved]
  - Agitation [Not Recovered/Not Resolved]
  - Red blood cell count abnormal [Recovered/Resolved]
  - Tremor [Recovered/Resolved]
  - Fatigue [Unknown]
  - Asthenia [Recovered/Resolved]
  - Headache [Not Recovered/Not Resolved]
  - Pneumonia [Not Recovered/Not Resolved]
  - Gastrooesophageal reflux disease [Unknown]
  - White blood cell count abnormal [Recovered/Resolved]
  - Haematological malignancy [Unknown]
  - Gait disturbance [Recovered/Resolved]
  - Adverse event [Unknown]
  - Initial insomnia [Not Recovered/Not Resolved]
  - Seizure [Unknown]
  - Abnormal loss of weight [Not Recovered/Not Resolved]
  - Dysphagia [Not Recovered/Not Resolved]
  - Pancreatic cyst [Not Recovered/Not Resolved]
  - Depressed mood [Unknown]
  - Dyspnoea [Unknown]
  - Abdominal pain upper [Not Recovered/Not Resolved]
  - Fear [Unknown]
  - Therapy cessation [Recovered/Resolved]
  - Hernia [Not Recovered/Not Resolved]
  - Inappropriate schedule of drug administration [Unknown]

NARRATIVE: CASE EVENT DATE: 1997
